FAERS Safety Report 23741051 (Version 2)
Quarter: 2024Q2

REPORT INFORMATION
  Report Type: Report from Study
  Country: US (occurrence: US)
  Receive Date: 20240415
  Receipt Date: 20240430
  Transmission Date: 20240716
  Serious: No
  Sender: FDA-Public Use
  Company Number: US-ESPERIONTHERAPEUTICS-2024USA00520

PATIENT

DRUGS (1)
  1. BEMPEDOIC ACID\EZETIMIBE [Suspect]
     Active Substance: BEMPEDOIC ACID\EZETIMIBE
     Indication: Blood cholesterol abnormal
     Dosage: 180 MG/10 MG, ONCE DAILY
     Route: 048

REACTIONS (5)
  - Myalgia [Recovering/Resolving]
  - Pruritus [Recovering/Resolving]
  - Headache [Unknown]
  - Urinary tract infection [Unknown]
  - Swelling [Recovering/Resolving]
